FAERS Safety Report 4637332-8 (Version None)
Quarter: 2005Q2

REPORT INFORMATION
  Report Type: 
  Country: None (occurrence: None)
  Receive Date: 20050328
  Receipt Date: 20041203
  Transmission Date: 20051028
  Serious: No
  Sender: FDA-Public Use
  Company Number: USA041285246

PATIENT
  Sex: Male

DRUGS (1)
  1. STRATTERA [Suspect]
     Indication: ATTENTION DEFICIT/HYPERACTIVITY DISORDER
     Dosage: 40 MG/3 DAY
     Dates: start: 20040101

REACTIONS (5)
  - EJACULATION DISORDER [None]
  - GENITAL DISORDER MALE [None]
  - INTENTIONAL MISUSE [None]
  - PENILE DISCHARGE [None]
  - SEXUAL DYSFUNCTION [None]
